FAERS Safety Report 23821580 (Version 1)
Quarter: 2024Q2

REPORT INFORMATION
  Report Type: Spontaneous
  Country: US (occurrence: US)
  Receive Date: 20240506
  Receipt Date: 20240506
  Transmission Date: 20240715
  Serious: No
  Sender: FDA-Public Use
  Company Number: US-BIOGEN-2024BI01262879

PATIENT
  Sex: Female

DRUGS (4)
  1. TYSABRI [Suspect]
     Active Substance: NATALIZUMAB
     Indication: Multiple sclerosis
     Dosage: PAST REGIMEN
     Route: 050
     Dates: start: 20061215, end: 20170425
  2. TYSABRI [Suspect]
     Active Substance: NATALIZUMAB
     Dosage: DOSE UNKNOWN
     Route: 050
     Dates: start: 20180703
  3. TYSABRI [Suspect]
     Active Substance: NATALIZUMAB
     Dosage: ALTERNATE DOSING SCHEDULE, 6 WEEKS
     Route: 050
  4. TYSABRI [Suspect]
     Active Substance: NATALIZUMAB
     Dosage: SWITCHED TO 8 WEEKS
     Route: 050

REACTIONS (2)
  - Prescribed underdose [Not Recovered/Not Resolved]
  - Malaise [Unknown]
